FAERS Safety Report 9913178 (Version 1)
Quarter: 2014Q1

REPORT INFORMATION
  Report Type: Spontaneous
  Country: US (occurrence: None)
  Receive Date: 20140218
  Receipt Date: 20140218
  Transmission Date: 20141002
  Serious: Yes (Hospitalization)
  Sender: FDA-Public Use
  Company Number: None

PATIENT
  Age: 71 Year
  Sex: Male
  Weight: 98.6 kg

DRUGS (1)
  1. RITUXIMAB [Suspect]
     Route: 042

REACTIONS (1)
  - Pneumonitis [None]
